FAERS Safety Report 10896510 (Version 1)
Quarter: 2015Q1

REPORT INFORMATION
  Report Type: Spontaneous
  Country: FR (occurrence: FR)
  Receive Date: 20150309
  Receipt Date: 20150309
  Transmission Date: 20150721
  Serious: Yes (Hospitalization)
  Sender: FDA-Public Use
  Company Number: FR-ROCHE-1548775

PATIENT
  Age: 50 Year
  Sex: Male

DRUGS (15)
  1. AFINITOR [Concomitant]
     Active Substance: EVEROLIMUS
  2. NEXAVAR [Concomitant]
     Active Substance: SORAFENIB
  3. OXYNORM [Concomitant]
     Active Substance: OXYCODONE HYDROCHLORIDE
     Route: 065
  4. AUGMENTIN [Concomitant]
     Active Substance: AMOXICILLIN\CLAVULANATE POTASSIUM
  5. INLYTA [Concomitant]
     Active Substance: AXITINIB
  6. AVASTIN [Suspect]
     Active Substance: BEVACIZUMAB
     Indication: RENAL CELL CARCINOMA
     Route: 065
     Dates: start: 20140929, end: 201412
  7. ALIMTA [Concomitant]
     Active Substance: PEMETREXED DISODIUM
  8. VELBE [Concomitant]
     Active Substance: VINBLASTINE SULFATE
  9. OXYNORM [Concomitant]
     Active Substance: OXYCODONE HYDROCHLORIDE
     Dosage: OXYNORM 15
     Route: 065
  10. SUTENT [Suspect]
     Active Substance: SUNITINIB MALATE
     Route: 065
     Dates: end: 201002
  11. SUTENT [Suspect]
     Active Substance: SUNITINIB MALATE
     Dosage: ALTERNATING 8 SESSIONS/MONTH WITH STOP FOR 14 DAYS.
     Route: 065
     Dates: end: 201103
  12. TAVANIC [Concomitant]
     Active Substance: LEVOFLOXACIN
  13. SUTENT [Suspect]
     Active Substance: SUNITINIB MALATE
     Indication: RENAL CELL CARCINOMA
     Route: 065
     Dates: start: 20140929, end: 201412
  14. OXYCONTIN [Concomitant]
     Active Substance: OXYCODONE HYDROCHLORIDE
     Route: 065
     Dates: start: 20140929
  15. OXYCONTIN [Concomitant]
     Active Substance: OXYCODONE HYDROCHLORIDE
     Route: 065

REACTIONS (1)
  - Glomerulonephropathy [Recovered/Resolved with Sequelae]

NARRATIVE: CASE EVENT DATE: 201411
